FAERS Safety Report 9265541 (Version 2)
Quarter: 2013Q2

REPORT INFORMATION
  Report Type: Spontaneous
  Country: US (occurrence: US)
  Receive Date: 20130501
  Receipt Date: 20130506
  Transmission Date: 20140414
  Serious: No
  Sender: FDA-Public Use
  Company Number: US-009507513-1304USA016137

PATIENT
  Sex: Male

DRUGS (3)
  1. VICTRELIS [Suspect]
     Indication: HEPATITIS C
     Dosage: UNK
     Dates: start: 20130408
  2. REBETOL [Suspect]
     Indication: HEPATITIS C
     Dosage: UNK
     Dates: start: 20130311
  3. PEGASYS [Suspect]
     Indication: HEPATITIS C
     Dosage: UNK
     Dates: start: 20130311

REACTIONS (7)
  - Disturbance in attention [Unknown]
  - Memory impairment [Unknown]
  - Somnolence [Unknown]
  - Leukopenia [Unknown]
  - White blood cell count decreased [Unknown]
  - Fatigue [Unknown]
  - Dysgeusia [Unknown]
